FAERS Safety Report 11610967 (Version 4)
Quarter: 2016Q1

REPORT INFORMATION
  Report Type: Spontaneous
  Country: US (occurrence: US)
  Receive Date: 20151008
  Receipt Date: 20160125
  Transmission Date: 20160525
  Serious: No
  Sender: FDA-Public Use
  Company Number: US-PFIZER INC-2015286784

PATIENT
  Age: 78 Year
  Sex: Male
  Weight: 88.44 kg

DRUGS (9)
  1. ALLOPURINOL. [Concomitant]
     Active Substance: ALLOPURINOL
     Dosage: UNK
  2. SIMVASTATIN. [Concomitant]
     Active Substance: SIMVASTATIN
     Dosage: UNK
  3. LEVOTHYROXINE. [Concomitant]
     Active Substance: LEVOTHYROXINE
  4. FELODIPINE. [Concomitant]
     Active Substance: FELODIPINE
     Dosage: UNK
  5. BYSTOLIC [Concomitant]
     Active Substance: NEBIVOLOL HYDROCHLORIDE
     Dosage: UNK
  6. PROTONIX [Concomitant]
     Active Substance: PANTOPRAZOLE SODIUM
     Dosage: UNK
  7. SUTENT [Suspect]
     Active Substance: SUNITINIB MALATE
     Indication: RENAL CANCER STAGE IV
     Dosage: 37.5 MG, CYCLIC (28 DAYS ON/14 DAYS OFF)
     Dates: start: 20150910, end: 20160101
  8. FLOMAX [Concomitant]
     Active Substance: TAMSULOSIN HYDROCHLORIDE
     Dosage: UNK
  9. PROSCAR [Concomitant]
     Active Substance: FINASTERIDE
     Dosage: UNK

REACTIONS (18)
  - Ageusia [Unknown]
  - Fatigue [Unknown]
  - Renal cancer stage IV [Unknown]
  - Dry skin [Unknown]
  - Hypoaesthesia oral [Unknown]
  - Weight decreased [Unknown]
  - Disease progression [Unknown]
  - Hyperaesthesia [Unknown]
  - Skin exfoliation [Unknown]
  - Immune system disorder [Unknown]
  - Dysgeusia [Unknown]
  - Glossodynia [Unknown]
  - Sluggishness [Unknown]
  - Cough [Unknown]
  - Gastrooesophageal reflux disease [Unknown]
  - Vitamin B12 deficiency [Unknown]
  - Palmar-plantar erythrodysaesthesia syndrome [Unknown]
  - Decreased appetite [Unknown]
